FAERS Safety Report 16557727 (Version 1)
Quarter: 2019Q3

REPORT INFORMATION
  Report Type: Spontaneous
  Country: US (occurrence: US)
  Receive Date: 20190529
  Receipt Date: 20190529
  Transmission Date: 20191004
  Serious: Yes (Other)
  Sender: FDA-Public Use
  Company Number: None

PATIENT
  Age: 65 Year
  Sex: Male
  Weight: 74.84 kg

DRUGS (1)
  1. CHILL RD VELVET TINCTURE CBD 1500 MG [Suspect]
     Active Substance: CANNABIDIOL
     Indication: SMOKING CESSATION THERAPY
     Route: 050
     Dates: start: 20190518, end: 20190518

REACTIONS (3)
  - Panic attack [None]
  - Heart rate increased [None]
  - Blood pressure increased [None]

NARRATIVE: CASE EVENT DATE: 20190518
